FAERS Safety Report 25204743 (Version 1)
Quarter: 2025Q2

REPORT INFORMATION
  Report Type: Spontaneous
  Country: JP (occurrence: JP)
  Receive Date: 20250416
  Receipt Date: 20250416
  Transmission Date: 20250716
  Serious: Yes (Other)
  Sender: NEUROCRINE BIOSCIENCES
  Company Number: JP-MTPC-MTPC2024-0023855

PATIENT
  Sex: Female

DRUGS (3)
  1. VALBENAZINE [Suspect]
     Active Substance: VALBENAZINE
     Indication: Product used for unknown indication
     Route: 048
  2. VALBENAZINE [Suspect]
     Active Substance: VALBENAZINE
     Route: 048
  3. VALBENAZINE [Suspect]
     Active Substance: VALBENAZINE
     Route: 048

REACTIONS (6)
  - Seizure [Unknown]
  - Akathisia [Unknown]
  - Sensory disturbance [Unknown]
  - Dyspnoea [Unknown]
  - Dyspnoea [Unknown]
  - Torticollis [Unknown]
